FAERS Safety Report 14191496 (Version 1)
Quarter: 2017Q4

REPORT INFORMATION
  Report Type: Report from Study
  Country: IE (occurrence: IE)
  Receive Date: 20171115
  Receipt Date: 20171115
  Transmission Date: 20180321
  Serious: Yes (Other)
  Sender: FDA-Public Use
  Company Number: IE-AMGEN-IRLSL2017150914

PATIENT
  Sex: Female

DRUGS (1)
  1. PROLIA [Suspect]
     Active Substance: DENOSUMAB
     Indication: OSTEOPOROSIS
     Dosage: 60 MG, Q6MO
     Route: 058
     Dates: start: 20141022

REACTIONS (4)
  - Toothache [Unknown]
  - Tooth disorder [Unknown]
  - Oral pain [Unknown]
  - Skeletal injury [Unknown]

NARRATIVE: CASE EVENT DATE: 2017
